FAERS Safety Report 6842131-2 (Version None)
Quarter: 2010Q3

REPORT INFORMATION
  Report Type: 
  Country: None (occurrence: None)
  Receive Date: 20100714
  Receipt Date: 20080725
  Transmission Date: 20110219
  Serious: No
  Sender: FDA-Public Use
  Company Number: US-PFIZER INC-2007061585

PATIENT
  Sex: Male

DRUGS (2)
  1. CHANTIX [Suspect]
     Dates: start: 20070723
  2. NICORETTE [Suspect]

REACTIONS (2)
  - DIZZINESS [None]
  - DYSPNOEA EXERTIONAL [None]
